FAERS Safety Report 8708463 (Version 2)
Quarter: 2012Q4

REPORT INFORMATION
  Report Type: 
  Country: CH (occurrence: FR)
  Receive Date: 20120806
  Receipt Date: 20121012
  Transmission Date: 20130627
  Serious: Yes (Other)
  Sender: FDA-Public Use
  Company Number: FR-BAYER-2012-077573

PATIENT
  Sex: Female
  Weight: 60 kg

DRUGS (1)
  1. NAPROXEN SODIUM ({= 220 MG) [Suspect]
     Indication: BACK PAIN
     Dosage: 1 DF,3 in 1 D
     Route: 048
     Dates: start: 20120722, end: 20120724

REACTIONS (2)
  - Ileitis [Recovering/Resolving]
  - Caecitis [Recovering/Resolving]
